FAERS Safety Report 7355320-8 (Version None)
Quarter: 2011Q1

REPORT INFORMATION
  Report Type: 
  Country: None (occurrence: None)
  Receive Date: 20110316
  Receipt Date: 20110308
  Transmission Date: 20110831
  Serious: Yes (Death, Hospitalization, Other)
  Sender: FDA-Public Use
  Company Number: US-ROCHE-733624

PATIENT
  Age: 67 Year
  Sex: Female
  Weight: 123.9 kg

DRUGS (16)
  1. HYDRALAZINE [Concomitant]
  2. METOPROLOL SUCCINATE [Concomitant]
  3. PREDNISONE [Suspect]
     Route: 048
     Dates: start: 20080622, end: 20091124
  4. MYCOPHENOLATE MOFETIL [Suspect]
     Route: 048
     Dates: start: 20080620, end: 20091113
  5. VALCYTE [Concomitant]
  6. LEVOTHYROXINE [Concomitant]
  7. MOXIFLOXACIN [Concomitant]
     Dates: start: 20091113
  8. SPIRIVA [Concomitant]
  9. ADVAIR DISKUS 100/50 [Concomitant]
  10. CYCLOSPORINE [Suspect]
     Route: 048
     Dates: start: 20080624
  11. CYCLOSPORINE [Suspect]
     Route: 048
     Dates: start: 20080624
  12. FLUNISOLIDE [Concomitant]
  13. ISOSORBIDE DINITRATE [Concomitant]
  14. OMEPRAZOLE [Concomitant]
  15. SODIUM BICARBONATE [Concomitant]
  16. HEPARIN [Concomitant]

REACTIONS (7)
  - ATRIAL FIBRILLATION [None]
  - MENTAL STATUS CHANGES [None]
  - LIVER FUNCTION TEST ABNORMAL [None]
  - SEPSIS [None]
  - RENAL FAILURE ACUTE [None]
  - DIABETIC KETOACIDOSIS [None]
  - ATRIAL FLUTTER [None]
